FAERS Safety Report 20215510 (Version 3)
Quarter: 2022Q2

REPORT INFORMATION
  Report Type: Spontaneous
  Country: CO (occurrence: CO)
  Receive Date: 20211222
  Receipt Date: 20220404
  Transmission Date: 20220721
  Serious: Yes (Life-Threatening, Other)
  Sender: FDA-Public Use
  Company Number: CO-PFIZER INC-202101775582

PATIENT
  Age: 73 Year
  Sex: Female

DRUGS (1)
  1. ENBREL [Suspect]
     Active Substance: ETANERCEPT
     Indication: Rheumatoid arthritis
     Dosage: 50 MG, UNSPECIFIED FREQUENCY
     Route: 058
     Dates: start: 2017

REACTIONS (13)
  - Intracranial aneurysm [Unknown]
  - Amnesia [Unknown]
  - Haemoglobin decreased [Unknown]
  - Underweight [Unknown]
  - Accident at home [Recovered/Resolved]
  - Pancreatic disorder [Unknown]
  - Vaginal disorder [Unknown]
  - Pallor [Unknown]
  - Product dose omission issue [Unknown]
  - Fall [Recovered/Resolved]
  - Joint injury [Recovered/Resolved]
  - Back injury [Recovered/Resolved]
  - Anaemia [Not Recovered/Not Resolved]

NARRATIVE: CASE EVENT DATE: 20160101
